FAERS Safety Report 7961836-3 (Version None)
Quarter: 2011Q4

REPORT INFORMATION
  Report Type: 
  Country: None (occurrence: None)
  Receive Date: 20111207
  Receipt Date: 20111207
  Transmission Date: 20120403
  Serious: Yes (Hospitalization)
  Sender: FDA-Public Use
  Company Number: None

PATIENT
  Age: 34 Year
  Sex: Female
  Weight: 58.967 kg

DRUGS (1)
  1. LEVOFLOXACIN [Suspect]
     Indication: KIDNEY INFECTION
     Dosage: 7 TABLETS
     Route: 048
     Dates: start: 20111117, end: 20111120

REACTIONS (18)
  - ALOPECIA [None]
  - TREMOR [None]
  - DYSPNOEA [None]
  - JOINT CREPITATION [None]
  - MYALGIA [None]
  - HEART RATE INCREASED [None]
  - BURNING SENSATION [None]
  - HEADACHE [None]
  - ARTHRALGIA [None]
  - ASTHENIA [None]
  - MEMORY IMPAIRMENT [None]
  - VISION BLURRED [None]
  - URTICARIA [None]
  - NIGHTMARE [None]
  - NAUSEA [None]
  - MUSCLE SPASMS [None]
  - TENDON PAIN [None]
  - BACK PAIN [None]
